FAERS Safety Report 14524484 (Version 3)
Quarter: 2018Q1

REPORT INFORMATION
  Report Type: Spontaneous
  Country: GT (occurrence: GT)
  Receive Date: 20180213
  Receipt Date: 20180226
  Transmission Date: 20180509
  Serious: Yes (Death, Hospitalization)
  Sender: FDA-Public Use
  Company Number: GT-ROCHE-2066469

PATIENT
  Age: 56 Year
  Sex: Male

DRUGS (3)
  1. AVASTIN [Suspect]
     Active Substance: BEVACIZUMAB
     Indication: METASTATIC RENAL CELL CARCINOMA
     Route: 065
     Dates: start: 20180115
  2. ATEZOLIZUMAB. [Suspect]
     Active Substance: ATEZOLIZUMAB
     Indication: METASTATIC RENAL CELL CARCINOMA
     Route: 042
     Dates: start: 20180115
  3. PAZOPANIB [Concomitant]
     Active Substance: PAZOPANIB

REACTIONS (7)
  - Hepatitis cholestatic [Unknown]
  - Thrombocytopenia [Recovering/Resolving]
  - Transaminases increased [Recovering/Resolving]
  - Anaemia [Recovering/Resolving]
  - Haemorrhage [Unknown]
  - Hepatitis cholestatic [Fatal]
  - Blood alkaline phosphatase increased [Recovering/Resolving]
